FAERS Safety Report 8796592 (Version 2)
Quarter: 2015Q1

REPORT INFORMATION
  Report Type: Report from Study
  Country: US (occurrence: US)
  Receive Date: 20120920
  Receipt Date: 20150313
  Transmission Date: 20150721
  Serious: Yes (Death)
  Sender: FDA-Public Use
  Company Number: US-ROCHE-1103745

PATIENT
  Age: 62 Year
  Sex: Female

DRUGS (12)
  1. TARCEVA [Suspect]
     Active Substance: ERLOTINIB HYDROCHLORIDE
     Indication: BREAST CANCER FEMALE
     Route: 065
  2. TAXOTERE [Concomitant]
     Active Substance: DOCETAXEL
     Route: 042
  3. CHOLESTYRAMINE. [Concomitant]
     Active Substance: CHOLESTYRAMINE
  4. AVASTIN [Suspect]
     Active Substance: BEVACIZUMAB
     Indication: BREAST CANCER FEMALE
     Route: 042
     Dates: start: 20050809
  5. ANZEMET [Concomitant]
     Active Substance: DOLASETRON MESYLATE
     Route: 042
  6. DEXAMETHASONE. [Concomitant]
     Active Substance: DEXAMETHASONE
     Route: 042
  7. HERCEPTIN [Suspect]
     Active Substance: TRASTUZUMAB
     Indication: BREAST CANCER FEMALE
     Route: 042
  8. ZOFRAN [Concomitant]
     Active Substance: ONDANSETRON HYDROCHLORIDE
     Route: 042
  9. AVASTIN [Suspect]
     Active Substance: BEVACIZUMAB
     Route: 042
  10. XELODA [Suspect]
     Active Substance: CAPECITABINE
     Indication: BREAST CANCER FEMALE
     Route: 065
  11. ZOMETA [Concomitant]
     Active Substance: ZOLEDRONIC ACID
     Route: 042
  12. ARANESP [Concomitant]
     Active Substance: DARBEPOETIN ALFA

REACTIONS (25)
  - Conjunctival haemorrhage [Unknown]
  - Upper respiratory tract infection [Unknown]
  - Epistaxis [Unknown]
  - Swelling face [Unknown]
  - Ingrowing nail [Unknown]
  - Death [Fatal]
  - Back pain [Unknown]
  - Pain [Unknown]
  - Tremor [Unknown]
  - Anaemia [Unknown]
  - Rectal haemorrhage [Unknown]
  - Visual acuity reduced [Unknown]
  - Weight decreased [Unknown]
  - Gingival disorder [Unknown]
  - Mouth ulceration [Unknown]
  - Osteomyelitis [Unknown]
  - Hot flush [Unknown]
  - Nausea [Unknown]
  - Thrombocytopenia [Unknown]
  - Decreased appetite [Unknown]
  - Fatigue [Unknown]
  - Painful defaecation [Unknown]
  - Nail infection [Unknown]
  - Osteonecrosis of jaw [Unknown]
  - Bone marrow failure [Unknown]

NARRATIVE: CASE EVENT DATE: 20061114
